FAERS Safety Report 10174289 (Version 1)
Quarter: 2014Q2

REPORT INFORMATION
  Report Type: Spontaneous
  Country: IT (occurrence: IT)
  Receive Date: 20140515
  Receipt Date: 20140515
  Transmission Date: 20141212
  Serious: Yes (Hospitalization)
  Sender: FDA-Public Use
  Company Number: IT-WATSON-2013-25410

PATIENT
  Age: 45 Year
  Sex: Female

DRUGS (7)
  1. ZOLPIDEM (UNKNOWN) [Suspect]
     Indication: INTENTIONAL SELF-INJURY
     Route: 065
     Dates: start: 20130821, end: 20130821
  2. EN 1 MG/ML ORAL DROPS, SOLUTION (ABBOT SRL) (ATC N05BA) [Suspect]
     Indication: INTENTIONAL SELF-INJURY
     Dosage: 40 MG, TOTAL
     Route: 048
     Dates: start: 20130821, end: 20130821
  3. DEPALGOS [Suspect]
     Indication: INTENTIONAL SELF-INJURY
     Route: 065
     Dates: start: 20130821, end: 20130821
  4. OXYCONTIN (MUNDIPHARMA PHARMACEUTICALS SRL) (ATC N02AA05) [Suspect]
     Indication: INTENTIONAL SELF-INJURY
     Dates: start: 20130821, end: 20130821
  5. TELMISARTAN [Concomitant]
     Indication: HYPERTENSION
     Route: 065
  6. BISOPROLOL HEMIFUMARATE [Concomitant]
     Indication: PRODUCT USED FOR UNKNOWN INDICATION
     Route: 065
  7. OMEPRAZOLE [Concomitant]
     Indication: GASTRITIS PROPHYLAXIS
     Route: 065

REACTIONS (2)
  - Coma [Recovered/Resolved]
  - Drug abuse [Recovered/Resolved]
